FAERS Safety Report 7776728 (Version 2)
Quarter: 2012Q4

REPORT INFORMATION
  Report Type: Spontaneous
  Country: JP (occurrence: None)
  Receive Date: 20110104
  Receipt Date: 20120814
  Transmission Date: 20130627
  Serious: Yes (Hospitalization)
  Sender: FDA-Public Use
  Company Number: CIP10003045

PATIENT
  Age: 81 Year
  Sex: Female

DRUGS (7)
  1. RISEDRONATE SODIUM [Suspect]
     Indication: OSTEOPOROSIS
     Dosage: 2.5 MG DAILY, ORAL
     Route: 048
     Dates: end: 201011
  2. BLOPRESS (CANDESARTAN CILEXETIL) [Concomitant]
  3. ROCALTROL [Concomitant]
  4. INDAPAMIDE [Concomitant]
  5. PRAVASTATIN [Concomitant]
  6. CARNACULIN /00088101/ (KALLIDINOGENASE) [Concomitant]
  7. CALBLOCK (AZELNIDIPINE) [Concomitant]

REACTIONS (5)
  - Femur fracture [None]
  - Osteosclerosis [None]
  - Femur fracture [None]
  - Atypical femur fracture [None]
  - Bone resorption test abnormal [None]
